FAERS Safety Report 6624041-9 (Version None)
Quarter: 2010Q1

REPORT INFORMATION
  Report Type: 
  Country: None (occurrence: None)
  Receive Date: 20100310
  Receipt Date: 20100226
  Transmission Date: 20100710
  Serious: Yes (Hospitalization, Other)
  Sender: FDA-Public Use
  Company Number: US-ELI_LILLY_AND_COMPANY-US201001001216

PATIENT
  Age: 14 Year
  Sex: Female

DRUGS (4)
  1. ZYPREXA [Suspect]
     Indication: BIPOLAR DISORDER
     Dosage: 2.5 MG, UNK
     Dates: start: 20090901, end: 20090903
  2. ZYPREXA [Suspect]
     Dosage: 5 MG, UNK
     Dates: start: 20090903, end: 20090910
  3. ZYPREXA [Suspect]
     Dosage: 7.5 MG, UNK
     Dates: start: 20090910, end: 20091001
  4. LITHIUM [Concomitant]
     Indication: BIPOLAR DISORDER
     Dosage: 600 MG, 2/D
     Dates: start: 20090821

REACTIONS (6)
  - BLOOD GLUCOSE INCREASED [None]
  - MENTAL DISORDER [None]
  - OFF LABEL USE [None]
  - POLYDIPSIA [None]
  - POLYURIA [None]
  - WEIGHT INCREASED [None]
